FAERS Safety Report 7017751-5 (Version None)
Quarter: 2010Q3

REPORT INFORMATION
  Report Type: 
  Country: None (occurrence: None)
  Receive Date: 20100909
  Receipt Date: 20100809
  Transmission Date: 20110219
  Serious: No
  Sender: FDA-Public Use
  Company Number: 2010SP043387

PATIENT
  Age: 40 Year
  Sex: Female

DRUGS (3)
  1. SAPHRIS [Suspect]
     Indication: BIPOLAR DISORDER
     Dosage: 10 MG;HS; SL
     Route: 060
     Dates: start: 20100727, end: 20100802
  2. XANAX (CON.) [Concomitant]
  3. LITHIUM (CON.) [Concomitant]

REACTIONS (2)
  - INAPPROPRIATE SCHEDULE OF DRUG ADMINISTRATION [None]
  - MOUTH ULCERATION [None]
